FAERS Safety Report 14270614 (Version 1)
Quarter: 2017Q4

REPORT INFORMATION
  Report Type: Spontaneous
  Country: GB (occurrence: GB)
  Receive Date: 20171211
  Receipt Date: 20171211
  Transmission Date: 20180321
  Serious: Yes (Death, Other)
  Sender: FDA-Public Use
  Company Number: GB-OTSUKA-2015_008184

PATIENT

DRUGS (11)
  1. ABILIFY [Suspect]
     Active Substance: ARIPIPRAZOLE
     Indication: SCHIZOPHRENIA
     Dosage: 15 MG, QD
     Route: 048
     Dates: start: 201407
  2. CLOZARIL [Suspect]
     Active Substance: CLOZAPINE
     Indication: SCHIZOPHRENIA
     Dosage: UNK
     Route: 048
     Dates: start: 20061128
  3. GLICLAZIDE [Concomitant]
     Active Substance: GLICLAZIDE
     Indication: DIABETES MELLITUS
  4. METFORMIN [Concomitant]
     Active Substance: METFORMIN HYDROCHLORIDE
     Indication: DIABETES MELLITUS
     Dosage: 1500 MG, QD
     Route: 048
     Dates: start: 201303, end: 201507
  5. CLOZARIL [Suspect]
     Active Substance: CLOZAPINE
     Indication: PSYCHOTIC DISORDER
     Dosage: 200 MG, QD
     Route: 048
     Dates: start: 200501
  6. ATORVASTATIN [Concomitant]
     Active Substance: ATORVASTATIN
     Indication: PRODUCT USED FOR UNKNOWN INDICATION
     Dosage: UNK
     Route: 065
     Dates: start: 201303
  7. METFORMIN [Concomitant]
     Active Substance: METFORMIN HYDROCHLORIDE
     Indication: PRODUCT USED FOR UNKNOWN INDICATION
     Dosage: UNK
     Route: 065
     Dates: start: 201303, end: 201507
  8. ATORVASTATIN [Concomitant]
     Active Substance: ATORVASTATIN
     Indication: DIABETES MELLITUS
     Dosage: 20 MG, QD
     Route: 048
     Dates: start: 201303
  9. ABILIFY [Suspect]
     Active Substance: ARIPIPRAZOLE
     Indication: WEIGHT INCREASED
  10. CLOZAPINE. [Suspect]
     Active Substance: CLOZAPINE
     Indication: SCHIZOPHRENIA
     Dosage: 315 MG, QD
     Route: 048
  11. GLICLAZIDE [Concomitant]
     Active Substance: GLICLAZIDE
     Indication: PRODUCT USED FOR UNKNOWN INDICATION
     Dosage: UNK
     Route: 065
     Dates: start: 201312, end: 201507

REACTIONS (8)
  - Hypertension [Unknown]
  - Cardiac failure congestive [Unknown]
  - Lymphocytosis [Unknown]
  - Sudden death [Fatal]
  - Obesity [Not Recovered/Not Resolved]
  - Body mass index increased [Not Recovered/Not Resolved]
  - Ventricular hypertrophy [Unknown]
  - Type 2 diabetes mellitus [Unknown]

NARRATIVE: CASE EVENT DATE: 2008
